FAERS Safety Report 5965814-5 (Version None)
Quarter: 2008Q4

REPORT INFORMATION
  Report Type: 
  Country: None (occurrence: None)
  Receive Date: 20081121
  Receipt Date: 20081121
  Transmission Date: 20090506
  Serious: Yes (Hospitalization)
  Sender: FDA-Public Use
  Company Number: None

PATIENT
  Age: 54 Year
  Sex: Female
  Weight: 53.0709 kg

DRUGS (2)
  1. QUINAPRIL [Suspect]
     Indication: HYPERTENSION
     Dosage: 40MG ONCE DAILY PO
     Route: 048
     Dates: start: 19980521, end: 20081119
  2. TEKTURNA [Suspect]
     Indication: HYPERTENSION
     Dosage: 150MG  ONCE DAILY PO
     Route: 048
     Dates: start: 20081116, end: 20081119

REACTIONS (1)
  - ANGIOEDEMA [None]
